FAERS Safety Report 20793497 (Version 5)
Quarter: 2022Q3

REPORT INFORMATION
  Report Type: Spontaneous
  Country: US (occurrence: US)
  Receive Date: 20220506
  Receipt Date: 20220914
  Transmission Date: 20221026
  Serious: Yes (Hospitalization, Other)
  Sender: FDA-Public Use
  Company Number: US-ORGANON-O2205USA000333

PATIENT
  Sex: Female
  Weight: 146.94 kg

DRUGS (2)
  1. NEXPLANON [Suspect]
     Active Substance: ETONOGESTREL
     Indication: Contraception
     Dosage: 1 ROD/ EVERY 3 YEARS, IN LEFT ARM
     Route: 059
     Dates: start: 20190418, end: 20220414
  2. SYNTHROID [Concomitant]
     Active Substance: LEVOTHYROXINE SODIUM
     Dosage: UNK

REACTIONS (6)
  - Appendicitis perforated [Recovered/Resolved]
  - Thyroidectomy [Recovered/Resolved]
  - Weight increased [Unknown]
  - Confusion postoperative [Unknown]
  - Aggression [Unknown]
  - Device breakage [Recovered/Resolved]

NARRATIVE: CASE EVENT DATE: 20210101
